FAERS Safety Report 7018013-2 (Version None)
Quarter: 2010Q3

REPORT INFORMATION
  Report Type: 
  Country: None (occurrence: None)
  Receive Date: 20100928
  Receipt Date: 20100916
  Transmission Date: 20110219
  Serious: Yes (Hospitalization, Other)
  Sender: FDA-Public Use
  Company Number: PHHY2010US49905

PATIENT
  Sex: Female
  Weight: 80.1 kg

DRUGS (6)
  1. SANDIMMUNE [Suspect]
     Indication: APLASTIC ANAEMIA
     Dosage: 200 MG, BID
     Route: 048
     Dates: start: 20100517, end: 20100605
  2. PREDNISOLONE [Concomitant]
     Dosage: UNK
  3. ANTI-THYMOCYTE GLOBULIN NOS [Concomitant]
     Indication: APLASTIC ANAEMIA
     Dosage: 3200 MG, QD
     Route: 042
     Dates: start: 20100517, end: 20100620
  4. ECULIZUMAB [Concomitant]
     Indication: PAROXYSMAL NOCTURNAL HAEMOGLOBINURIA
     Dosage: 900 MG, UNK
     Route: 042
     Dates: start: 20100525
  5. ECULIZUMAB [Concomitant]
     Dosage: UNK
     Dates: start: 20100608
  6. METHYLPREDNISOLONE [Concomitant]
     Indication: APLASTIC ANAEMIA
     Dosage: 60 MG, 12 HOURS X 8 DOSES
     Route: 042
     Dates: start: 20100517, end: 20100920

REACTIONS (7)
  - BLOOD LACTATE DEHYDROGENASE INCREASED [None]
  - DYSSTASIA [None]
  - GAIT DISTURBANCE [None]
  - HYPERAESTHESIA [None]
  - PAIN IN EXTREMITY [None]
  - PLATELET COUNT DECREASED [None]
  - SPINAL DEFORMITY [None]
